FAERS Safety Report 10154121 (Version 1)
Quarter: 2014Q2

REPORT INFORMATION
  Report Type: Spontaneous
  Country: US (occurrence: None)
  Receive Date: 20140505
  Receipt Date: 20140505
  Transmission Date: 20141212
  Serious: Yes (Hospitalization)
  Sender: FDA-Public Use
  Company Number: None

PATIENT
  Age: 30 Year
  Sex: Male

DRUGS (4)
  1. ACETAMINOPHEN [Suspect]
     Route: 048
     Dates: start: 20130406, end: 20130406
  2. DIPHENHYDRAMINE [Concomitant]
  3. EFAVIRENT [Concomitant]
  4. EMTRICITABINE +TENOFOVIR [Concomitant]

REACTIONS (3)
  - Suicide attempt [None]
  - Somnolence [None]
  - Overdose [None]
